FAERS Safety Report 7925523-X (Version None)
Quarter: 2011Q4

REPORT INFORMATION
  Report Type: 
  Country: None (occurrence: None)
  Receive Date: 20111118
  Receipt Date: 20101210
  Transmission Date: 20120403
  Serious: No
  Sender: FDA-Public Use
  Company Number: US-AMGEN-USASP2010005948

PATIENT
  Age: 36 Year
  Sex: Female
  Weight: 117.1 kg

DRUGS (5)
  1. PLAQUENIL [Concomitant]
     Indication: RHEUMATOID ARTHRITIS
     Dosage: 200 MG, BID
     Route: 048
  2. ENBREL [Suspect]
     Indication: RHEUMATOID ARTHRITIS
     Dosage: 50 MG, QWK
     Route: 058
     Dates: start: 20101004
  3. LISINOPRIL [Concomitant]
  4. METFORMIN HCL [Concomitant]
  5. CELEXA [Concomitant]

REACTIONS (5)
  - HEADACHE [None]
  - SWELLING FACE [None]
  - FACIAL PAIN [None]
  - COUGH [None]
  - OEDEMA PERIPHERAL [None]
